FAERS Safety Report 18499794 (Version 3)
Quarter: 2022Q1

REPORT INFORMATION
  Report Type: Report from Study
  Country: US (occurrence: US)
  Receive Date: 20201113
  Receipt Date: 20220210
  Transmission Date: 20220423
  Serious: Yes (Other)
  Sender: FDA-Public Use
  Company Number: US-GW PHARMA-202011USGW03874

PATIENT

DRUGS (2)
  1. EPIDIOLEX [Suspect]
     Active Substance: CANNABIDIOL
     Indication: Seizure
     Dosage: 150 MILLIGRAM (FREQUENCY UNKNOWN)
     Route: 048
     Dates: start: 201905
  2. EPIDIOLEX [Suspect]
     Active Substance: CANNABIDIOL
     Dosage: 8.26 MG/KG/DAY, 150 MILLIGRAM, BID
     Route: 048
     Dates: start: 202005, end: 20201107

REACTIONS (4)
  - Petit mal epilepsy [Not Recovered/Not Resolved]
  - Mydriasis [Not Recovered/Not Resolved]
  - Product dose omission issue [Unknown]
  - Product supply issue [Unknown]

NARRATIVE: CASE EVENT DATE: 20201108
